FAERS Safety Report 11333559 (Version 1)
Quarter: 2015Q3

REPORT INFORMATION
  Report Type: Spontaneous
  Country: US (occurrence: US)
  Receive Date: 20150803
  Receipt Date: 20150803
  Transmission Date: 20151125
  Serious: No
  Sender: FDA-Public Use
  Company Number: US-ELI_LILLY_AND_COMPANY-US200803002990

PATIENT
  Age: 48 Year
  Sex: Female
  Weight: 79.37 kg

DRUGS (31)
  1. ZYPREXA ZYDIS [Suspect]
     Active Substance: OLANZAPINE
     Dosage: 15 MG, 2/D
     Dates: start: 20051003
  2. LIPITOR [Concomitant]
     Active Substance: ATORVASTATIN CALCIUM
     Dosage: 20 MG, DAILY (1/D)
     Dates: start: 20021011
  3. PROPOXYPHENE NAPSYLATE [Concomitant]
     Active Substance: PROPOXYPHENE NAPSYLATE
     Dates: start: 20050730, end: 20050731
  4. TEQUIN [Concomitant]
     Active Substance: GATIFLOXACIN
     Dosage: 400 MG, UNK
     Dates: start: 20050104
  5. VERELAN [Concomitant]
     Active Substance: VERAPAMIL HYDROCHLORIDE
     Dosage: 200 MG, DAILY (1/D)
  6. ZYPREXA [Suspect]
     Active Substance: OLANZAPINE
     Dates: start: 2001
  7. PREMARIN [Concomitant]
     Active Substance: ESTROGENS, CONJUGATED
     Dosage: 1.25 MG, DAILY (1/D)
     Dates: start: 20030522
  8. SYNTHROID [Concomitant]
     Active Substance: LEVOTHYROXINE SODIUM
     Dosage: 112 IU/KG, DAILY (1/D)
  9. GEMFIBROZIL. [Concomitant]
     Active Substance: GEMFIBROZIL
     Dosage: 600 MG, 2/D
     Dates: start: 20021203
  10. FLUOXETINE [Concomitant]
     Active Substance: FLUOXETINE\FLUOXETINE HYDROCHLORIDE
     Dosage: 20 MG, DAILY (1/D)
     Dates: start: 20021203
  11. TOBRADEX [Concomitant]
     Active Substance: DEXAMETHASONE\TOBRAMYCIN
     Dates: start: 20040217
  12. CEPHALEXIN. [Concomitant]
     Active Substance: CEPHALEXIN
     Dosage: 500 MG, 2/D
     Dates: start: 20050730, end: 200508
  13. NIASPAN [Concomitant]
     Active Substance: NIACIN
     Dosage: 500 MG, UNK
     Dates: start: 20041123
  14. VERAPAMIL [Concomitant]
     Active Substance: VERAPAMIL HYDROCHLORIDE
     Dosage: 180 MG, UNK
     Dates: start: 20041201
  15. ABILIFY [Concomitant]
     Active Substance: ARIPIPRAZOLE
     Dosage: 15 MG, UNK
     Dates: start: 20050713
  16. ZYPREXA [Suspect]
     Active Substance: OLANZAPINE
     Dosage: 15 MG, 2/D
     Dates: start: 20021106, end: 20050901
  17. SYNTHROID [Concomitant]
     Active Substance: LEVOTHYROXINE SODIUM
     Dosage: 100 IU/KG, DAILY (1/D)
     Dates: start: 20021015, end: 20021112
  18. TRICOR [Concomitant]
     Active Substance: FENOFIBRATE
     Dosage: 160 MG, DAILY (1/D)
     Dates: start: 20040503, end: 20050113
  19. HYDROCHLOROTHIAZIDE. [Concomitant]
     Active Substance: HYDROCHLOROTHIAZIDE
     Dosage: 12.5 MG, DAILY (1/D)
  20. KETEK [Concomitant]
     Active Substance: TELITHROMYCIN
     Dosage: 400 MG, UNK
     Dates: start: 20041110
  21. DIOVAN [Concomitant]
     Active Substance: VALSARTAN
     Dosage: 1 D/F, UNK
     Dates: start: 20050426
  22. SYNTHROID [Concomitant]
     Active Substance: LEVOTHYROXINE SODIUM
     Dosage: 150 IU/KG, DAILY (1/D)
     Dates: start: 20021113, end: 20030703
  23. SYNTHROID [Concomitant]
     Active Substance: LEVOTHYROXINE SODIUM
     Dosage: 175 IU/KG, UNK
     Dates: start: 20030731
  24. ESTRADIOL. [Concomitant]
     Active Substance: ESTRADIOL
     Dosage: 2 MG, DAILY (1/D)
     Dates: start: 20040119
  25. NASONEX [Concomitant]
     Active Substance: MOMETASONE FUROATE
     Dosage: 50 IU/KG, UNK
     Dates: start: 20031022
  26. PREMARIN [Concomitant]
     Active Substance: ESTROGENS, CONJUGATED
     Dosage: 1.25 MG, DAILY (1/D)
     Dates: start: 20020919, end: 20030403
  27. PREMARIN [Concomitant]
     Active Substance: ESTROGENS, CONJUGATED
     Dosage: 0.625 MG, DAILY (1/D)
     Dates: start: 20030404, end: 20030521
  28. TRICOR [Concomitant]
     Active Substance: FENOFIBRATE
     Dosage: 145 MG, DAILY (1/D)
     Dates: start: 20050114
  29. METAGLIP [Concomitant]
     Active Substance: GLIPIZIDE\METFORMIN HYDROCHLORIDE
     Dosage: 1 D/F, UNK
  30. PROZAC [Concomitant]
     Active Substance: FLUOXETINE HYDROCHLORIDE
     Dates: start: 20050308
  31. VALPROIC ACID. [Concomitant]
     Active Substance: VALPROIC ACID
     Dosage: 250 MG, 2/D
     Dates: start: 20020919

REACTIONS (3)
  - Prescribed overdose [Unknown]
  - Obesity [Not Recovered/Not Resolved]
  - Diabetes mellitus [Not Recovered/Not Resolved]

NARRATIVE: CASE EVENT DATE: 2001
